FAERS Safety Report 14141158 (Version 1)
Quarter: 2017Q4

REPORT INFORMATION
  Report Type: Report from Study
  Country: None (occurrence: US)
  Receive Date: 20171030
  Receipt Date: 20171030
  Transmission Date: 20180321
  Serious: Yes (Hospitalization, Other)
  Sender: FDA-Public Use
  Company Number: US-ABBVIE-17K-163-2140632-00

PATIENT
  Sex: Male

DRUGS (1)
  1. HUMIRA [Suspect]
     Active Substance: ADALIMUMAB
     Indication: HIDRADENITIS
     Route: 058

REACTIONS (6)
  - Myocardial infarction [Not Recovered/Not Resolved]
  - General physical health deterioration [Not Recovered/Not Resolved]
  - Atrial fibrillation [Unknown]
  - Chronic obstructive pulmonary disease [Not Recovered/Not Resolved]
  - Gouty arthritis [Not Recovered/Not Resolved]
  - Diabetes mellitus [Not Recovered/Not Resolved]
